FAERS Safety Report 15676185 (Version 1)
Quarter: 2018Q4

REPORT INFORMATION
  Report Type: Report from Study
  Country: US (occurrence: US)
  Receive Date: 20181127
  Receipt Date: 20181127
  Transmission Date: 20190205
  Serious: Yes (Other)
  Sender: FDA-Public Use
  Company Number: US-JNJFOC-20181134349

PATIENT
  Age: 69 Year
  Sex: Female

DRUGS (1)
  1. IMBRUVICA [Suspect]
     Active Substance: IBRUTINIB
     Indication: CHRONIC LYMPHOCYTIC LEUKAEMIA
     Dosage: 1 EXPDT=31-DEC-2019
     Route: 048
     Dates: start: 20181106

REACTIONS (4)
  - Anaemia [Unknown]
  - White blood cell count increased [Unknown]
  - Precancerous skin lesion [Unknown]
  - Insomnia [Unknown]

NARRATIVE: CASE EVENT DATE: 201811
